FAERS Safety Report 6900633-4 (Version None)
Quarter: 2010Q3

REPORT INFORMATION
  Report Type: 
  Country: None (occurrence: None)
  Receive Date: 20100730
  Receipt Date: 20100716
  Transmission Date: 20110219
  Serious: Yes (Hospitalization)
  Sender: FDA-Public Use
  Company Number: 2010MA000990

PATIENT
  Sex: Female

DRUGS (1)
  1. VENLAFAXINE HCL [Suspect]
     Dosage: QD; PO
     Route: 048

REACTIONS (2)
  - DRUG EXPOSURE VIA BREAST MILK [None]
  - DRUG INEFFECTIVE [None]
